FAERS Safety Report 24412540 (Version 2)
Quarter: 2025Q2

REPORT INFORMATION
  Report Type: Spontaneous
  Country: ES (occurrence: ES)
  Receive Date: 20241008
  Receipt Date: 20250624
  Transmission Date: 20250716
  Serious: Yes (Life-Threatening, Hospitalization, Other)
  Sender: MYLAN
  Company Number: None

PATIENT
  Age: 45 Year
  Sex: Female
  Weight: 56.9 kg

DRUGS (24)
  1. SERTRALINE [Interacting]
     Active Substance: SERTRALINE HYDROCHLORIDE
     Indication: Product used for unknown indication
     Dates: start: 20240816, end: 20240816
  2. SERTRALINE [Interacting]
     Active Substance: SERTRALINE HYDROCHLORIDE
     Route: 048
     Dates: start: 20240816, end: 20240816
  3. SERTRALINE [Interacting]
     Active Substance: SERTRALINE HYDROCHLORIDE
     Route: 048
     Dates: start: 20240816, end: 20240816
  4. SERTRALINE [Interacting]
     Active Substance: SERTRALINE HYDROCHLORIDE
     Dates: start: 20240816, end: 20240816
  5. ACETAMINOPHEN [Interacting]
     Active Substance: ACETAMINOPHEN
     Indication: Product used for unknown indication
     Dates: start: 20240816, end: 20240816
  6. ACETAMINOPHEN [Interacting]
     Active Substance: ACETAMINOPHEN
     Route: 048
     Dates: start: 20240816, end: 20240816
  7. ACETAMINOPHEN [Interacting]
     Active Substance: ACETAMINOPHEN
     Route: 048
     Dates: start: 20240816, end: 20240816
  8. ACETAMINOPHEN [Interacting]
     Active Substance: ACETAMINOPHEN
     Dates: start: 20240816, end: 20240816
  9. OLANZAPINE [Interacting]
     Active Substance: OLANZAPINE
     Indication: Product used for unknown indication
     Dates: start: 20240816
  10. OLANZAPINE [Interacting]
     Active Substance: OLANZAPINE
     Route: 048
     Dates: start: 20240816
  11. OLANZAPINE [Interacting]
     Active Substance: OLANZAPINE
     Route: 048
     Dates: start: 20240816
  12. OLANZAPINE [Interacting]
     Active Substance: OLANZAPINE
     Dates: start: 20240816
  13. LORAZEPAM [Interacting]
     Active Substance: LORAZEPAM
     Indication: Product used for unknown indication
     Dates: start: 20240816, end: 20240816
  14. LORAZEPAM [Interacting]
     Active Substance: LORAZEPAM
     Route: 048
     Dates: start: 20240816, end: 20240816
  15. LORAZEPAM [Interacting]
     Active Substance: LORAZEPAM
     Route: 048
     Dates: start: 20240816, end: 20240816
  16. LORAZEPAM [Interacting]
     Active Substance: LORAZEPAM
     Dates: start: 20240816, end: 20240816
  17. PREGABALIN [Interacting]
     Active Substance: PREGABALIN
     Indication: Product used for unknown indication
     Dates: start: 20240816, end: 20240816
  18. PREGABALIN [Interacting]
     Active Substance: PREGABALIN
     Route: 048
     Dates: start: 20240816, end: 20240816
  19. PREGABALIN [Interacting]
     Active Substance: PREGABALIN
     Route: 048
     Dates: start: 20240816, end: 20240816
  20. PREGABALIN [Interacting]
     Active Substance: PREGABALIN
     Dates: start: 20240816, end: 20240816
  21. ARIPIPRAZOLE [Interacting]
     Active Substance: ARIPIPRAZOLE
     Indication: Product used for unknown indication
     Dates: start: 20240816, end: 20240816
  22. ARIPIPRAZOLE [Interacting]
     Active Substance: ARIPIPRAZOLE
     Route: 048
     Dates: start: 20240816, end: 20240816
  23. ARIPIPRAZOLE [Interacting]
     Active Substance: ARIPIPRAZOLE
     Route: 048
     Dates: start: 20240816, end: 20240816
  24. ARIPIPRAZOLE [Interacting]
     Active Substance: ARIPIPRAZOLE
     Dates: start: 20240816, end: 20240816

REACTIONS (11)
  - Pneumonia aspiration [Recovered/Resolved]
  - Amylase increased [Recovered/Resolved]
  - Hepatic cytolysis [Recovered/Resolved]
  - Depressed level of consciousness [Recovered/Resolved]
  - Hallucination, visual [Recovered/Resolved]
  - Akathisia [Recovered/Resolved]
  - Serotonin syndrome [Recovered/Resolved]
  - Neuroleptic malignant syndrome [Recovered/Resolved]
  - Suicide attempt [Unknown]
  - Drug interaction [Unknown]
  - Intentional overdose [Recovered/Resolved]

NARRATIVE: CASE EVENT DATE: 20240816
